FAERS Safety Report 9068306 (Version 1)
Quarter: 2013Q1

REPORT INFORMATION
  Report Type: Spontaneous
  Country: US (occurrence: US)
  Receive Date: 20130206
  Receipt Date: 20130206
  Transmission Date: 20140127
  Serious: Yes (Other)
  Sender: FDA-Public Use
  Company Number: US-TEVA-383854USA

PATIENT
  Sex: Female
  Weight: 49.94 kg

DRUGS (1)
  1. CLONAZEPAM [Suspect]

REACTIONS (3)
  - Altered state of consciousness [Unknown]
  - Confusional state [Unknown]
  - Overdose [Unknown]
